FAERS Safety Report 23793692 (Version 1)
Quarter: 2024Q2

REPORT INFORMATION
  Report Type: Spontaneous
  Country: US (occurrence: None)
  Receive Date: 20240426
  Receipt Date: 20240426
  Transmission Date: 20240716
  Serious: Yes (Hospitalization)
  Sender: FDA-Public Use
  Company Number: None

PATIENT
  Age: 78 Year
  Sex: Female

DRUGS (14)
  1. FORTEO [Suspect]
     Active Substance: TERIPARATIDE
     Indication: Osteoporosis
     Dosage: FREQUENCY : DAILY;?
     Route: 058
     Dates: start: 20220928
  2. FLUTICASONE ALLERGY NASAL [Concomitant]
  3. LORATADINE [Concomitant]
     Active Substance: LORATADINE
  4. ASPIRIN [Concomitant]
     Active Substance: ASPIRIN
  5. ALBUTEROL HFA INH [Concomitant]
  6. LEVOTHYROXINE [Concomitant]
     Active Substance: LEVOTHYROXINE\LEVOTHYROXINE SODIUM
  7. ZINC [Concomitant]
     Active Substance: PYRITHIONE ZINC\ZINC\ZINC CHLORIDE
  8. BREO ELLIPTA [Concomitant]
     Active Substance: FLUTICASONE FUROATE\VILANTEROL TRIFENATATE
  9. NAPROXEN [Concomitant]
  10. SIMVASTATIN [Concomitant]
     Active Substance: SIMVASTATIN
  11. FORTEO [Concomitant]
     Active Substance: TERIPARATIDE
  12. IPRATROPIUM NS [Concomitant]
  13. LOSARTAN [Concomitant]
     Active Substance: LOSARTAN
  14. APRATROPIAM/ALBUTEROL [Concomitant]

REACTIONS (4)
  - Vocal cord operation [None]
  - Procedural complication [None]
  - Cardiac arrest [None]
  - Therapy interrupted [None]

NARRATIVE: CASE EVENT DATE: 20240314
